FAERS Safety Report 7779356-8 (Version None)
Quarter: 2011Q3

REPORT INFORMATION
  Report Type: 
  Country: None (occurrence: None)
  Receive Date: 20110926
  Receipt Date: 20100211
  Transmission Date: 20111222
  Serious: Yes (Other)
  Sender: FDA-Public Use
  Company Number: PHHY2010TW13833

PATIENT
  Sex: Female

DRUGS (2)
  1. GLEEVEC [Suspect]
     Dosage: 800 MG, UNK
     Route: 048
     Dates: start: 20060520
  2. GLEEVEC [Suspect]
     Indication: GASTROINTESTINAL STROMAL TUMOUR
     Dosage: 600 MG, UNK
     Route: 048

REACTIONS (8)
  - OEDEMA [None]
  - NEOPLASM MALIGNANT [None]
  - WEIGHT INCREASED [None]
  - CONJUNCTIVAL HAEMORRHAGE [None]
  - RASH [None]
  - GASTROINTESTINAL STROMAL TUMOUR [None]
  - SKIN DISCOLOURATION [None]
  - BLISTER [None]
